FAERS Safety Report 8717911 (Version 14)
Quarter: 2014Q4

REPORT INFORMATION
  Report Type: Report from Study
  Country: AU (occurrence: AU)
  Receive Date: 20120810
  Receipt Date: 20141007
  Transmission Date: 20150529
  Serious: Yes (Hospitalization)
  Sender: FDA-Public Use
  Company Number: AU-ROCHE-1098923

PATIENT
  Age: 62 Year
  Sex: Female
  Weight: 55 kg

DRUGS (16)
  1. VEMURAFENIB [Suspect]
     Active Substance: VEMURAFENIB
     Dosage: DATE OF LAST DOSE PRIOR TO SAE : 23/JUL/2012
     Route: 048
     Dates: start: 20120517, end: 20120723
  2. PANADOL [Concomitant]
     Active Substance: ACETAMINOPHEN
     Route: 065
     Dates: start: 2010
  3. AMPHOTERICIN LOZENGES [Concomitant]
     Route: 065
     Dates: start: 20120601, end: 20120807
  4. CLARITIN [Concomitant]
     Active Substance: LORATADINE
     Route: 065
     Dates: start: 20120122
  5. TEMAZEPAM. [Concomitant]
     Active Substance: TEMAZEPAM
     Route: 065
     Dates: start: 20120130
  6. VEMURAFENIB [Suspect]
     Active Substance: VEMURAFENIB
     Indication: MALIGNANT MELANOMA
     Dosage: DATE OF LAST DOSE PRIOR TO SAE : 16/JAN/2012
     Route: 048
     Dates: start: 20111222
  7. FLUCONAZOLE. [Concomitant]
     Active Substance: FLUCONAZOLE
     Route: 065
     Dates: start: 20120724, end: 20120807
  8. FLUCONAZOLE. [Concomitant]
     Active Substance: FLUCONAZOLE
     Route: 065
     Dates: start: 20120703, end: 20120801
  9. NILSTAT (AUSTRALIA) [Concomitant]
     Route: 065
     Dates: start: 20120530
  10. SODIBIC [Concomitant]
     Route: 065
     Dates: start: 20120531
  11. PHENERGAN [Concomitant]
     Active Substance: PROMETHAZINE HYDROCHLORIDE
     Route: 065
     Dates: start: 20120119
  12. CLOTRIMAZOLE. [Concomitant]
     Active Substance: CLOTRIMAZOLE
     Dosage: UNKNOWN %
     Route: 065
     Dates: start: 20120406, end: 20120409
  13. FUNGILIN LOZENGES [Concomitant]
     Route: 065
     Dates: start: 20120601, end: 20120807
  14. OATMEAL. [Concomitant]
     Active Substance: OATMEAL
     Route: 065
     Dates: start: 20120109
  15. VEMURAFENIB [Suspect]
     Active Substance: VEMURAFENIB
     Dosage: DATE OF LAST DOSE PRIOR TO SAE : 30/MAR/2012
     Route: 048
     Dates: start: 20120128
  16. DOXYCYCLINE. [Concomitant]
     Active Substance: DOXYCYCLINE
     Route: 065
     Dates: start: 20120126

REACTIONS (2)
  - Mouth ulceration [Recovered/Resolved]
  - Colitis [Recovered/Resolved]

NARRATIVE: CASE EVENT DATE: 20120723
